FAERS Safety Report 25069745 (Version 6)
Quarter: 2025Q3

REPORT INFORMATION
  Report Type: Spontaneous
  Country: US (occurrence: US)
  Receive Date: 20250312
  Receipt Date: 20250708
  Transmission Date: 20251020
  Serious: Yes (Other)
  Sender: SANDOZ
  Company Number: US-002147023-NVSC2025US040748

PATIENT
  Age: 39 Year
  Sex: Female

DRUGS (5)
  1. ANASTROZOLE [Suspect]
     Active Substance: ANASTROZOLE
     Indication: Prophylaxis
     Route: 065
  2. ANASTROZOLE [Suspect]
     Active Substance: ANASTROZOLE
     Indication: Breast cancer
  3. KISQALI [Suspect]
     Active Substance: RIBOCICLIB SUCCINATE
     Route: 065
  4. KISQALI [Suspect]
     Active Substance: RIBOCICLIB SUCCINATE
     Indication: Breast cancer
     Route: 065
  5. KISQALI [Suspect]
     Active Substance: RIBOCICLIB SUCCINATE
     Indication: Prophylaxis
     Dosage: 600 MG, QD (600MG DAILY 21 DAYS ON, 7 DAYS OFF)
     Route: 048
     Dates: start: 202304

REACTIONS (5)
  - White blood cell count decreased [Recovered/Resolved]
  - Oropharyngeal pain [Recovered/Resolved]
  - Streptococcal infection [Recovering/Resolving]
  - Implant site erythema [Not Recovered/Not Resolved]
  - Implant site infection [Recovering/Resolving]

NARRATIVE: CASE EVENT DATE: 20230701
